FAERS Safety Report 15897119 (Version 1)
Quarter: 2019Q1

REPORT INFORMATION
  Report Type: Spontaneous
  Country: MM (occurrence: MM)
  Receive Date: 20190131
  Receipt Date: 20190131
  Transmission Date: 20190417
  Serious: Yes (Disabling, Other)
  Sender: FDA-Public Use
  Company Number: MM-009507513-1901MMR008825

PATIENT
  Sex: Male
  Weight: 37 kg

DRUGS (13)
  1. DELAMANID [Suspect]
     Active Substance: DELAMANID
     Indication: TUBERCULOSIS
     Dosage: 100 MILLIGRAM, BID
     Route: 048
     Dates: start: 20181121
  2. IMIPENEM AND CILASTATIN [Suspect]
     Active Substance: CILASTATIN SODIUM\IMIPENEM
     Indication: TUBERCULOSIS
     Dosage: 1 GRAM, BID
     Route: 065
     Dates: start: 20181121
  3. LINEZOLID. [Suspect]
     Active Substance: LINEZOLID
     Dosage: 300 MILLIGRAM, QD
     Dates: start: 20181106, end: 20181224
  4. CLOFAZIMINE [Suspect]
     Active Substance: CLOFAZIMINE
     Indication: TUBERCULOSIS
     Dosage: 200 MILLIGRAM, QD
     Route: 048
     Dates: start: 20180517
  5. LINEZOLID. [Suspect]
     Active Substance: LINEZOLID
     Indication: TUBERCULOSIS
     Dosage: 600 MILLIGRAM, QD
     Dates: start: 20180517, end: 201811
  6. BEDAQUILINE [Suspect]
     Active Substance: BEDAQUILINE
     Dosage: 200 MILLIGRAM, TIW
     Route: 065
     Dates: start: 201805
  7. LEVOFLOXACIN. [Concomitant]
     Active Substance: LEVOFLOXACIN
     Indication: TUBERCULOSIS
     Dosage: UNK
     Dates: start: 20180517
  8. PYRAZINAMIDE. [Concomitant]
     Active Substance: PYRAZINAMIDE
     Indication: TUBERCULOSIS
     Dosage: UNK
     Dates: start: 20180517
  9. PYRIDOXINE [Concomitant]
     Active Substance: PYRIDOXINE
     Indication: PROPHYLAXIS
     Dosage: UNK
     Dates: start: 20180517
  10. AMOXIL [Concomitant]
     Active Substance: AMOXICILLIN
     Indication: TUBERCULOSIS
     Dosage: UNK
     Dates: start: 20180517
  11. AMOXICLAV [Suspect]
     Active Substance: AMOXICILLIN\CLAVULANATE POTASSIUM
     Indication: TUBERCULOSIS
     Dosage: 625 MILLIGRAM, BID
     Route: 065
     Dates: start: 20181121
  12. BEDAQUILINE [Suspect]
     Active Substance: BEDAQUILINE
     Indication: TUBERCULOSIS
     Dosage: 400 MILLIGRAM, QD X 2 WEEKS
     Route: 065
     Dates: start: 20180517, end: 201805
  13. ETHIONAMIDE [Concomitant]
     Active Substance: ETHIONAMIDE
     Indication: TUBERCULOSIS
     Dosage: UNK
     Dates: start: 20180517

REACTIONS (1)
  - Neuropathy peripheral [Unknown]

NARRATIVE: CASE EVENT DATE: 20181224
